FAERS Safety Report 10884360 (Version 1)
Quarter: 2015Q1

REPORT INFORMATION
  Report Type: Spontaneous
  Country: US (occurrence: None)
  Receive Date: 20150227
  Receipt Date: 20150227
  Transmission Date: 20150721
  Serious: Yes (Hospitalization)
  Sender: FDA-Public Use
  Company Number: PR 5141

PATIENT
  Age: 78 Year
  Sex: Female

DRUGS (1)
  1. COSOPT [Suspect]
     Active Substance: DORZOLAMIDE HYDROCHLORIDE\TIMOLOL MALEATE
     Indication: CATARACT
     Dosage: ONE DROP EACH EYE
     Dates: start: 2012, end: 201412

REACTIONS (6)
  - Eye pruritus [None]
  - Visual impairment [None]
  - Crying [None]
  - Emotional disorder [None]
  - Fear [None]
  - Lacrimation increased [None]

NARRATIVE: CASE EVENT DATE: 2012
